FAERS Safety Report 5307775-8 (Version None)
Quarter: 2007Q2

REPORT INFORMATION
  Report Type: 
  Country: None (occurrence: None)
  Receive Date: 20070418
  Receipt Date: 20070410
  Transmission Date: 20071010
  Serious: Yes (Death, Other)
  Sender: FDA-Public Use
  Company Number: 163-21880-06110546

PATIENT
  Age: 72 Year
  Sex: Female

DRUGS (14)
  1. REVLIMID [Suspect]
     Indication: MULTIPLE MYELOMA
     Dosage: 25 MG, QD X 21D ON, 7D OFF, ORAL
     Route: 048
     Dates: start: 20061017
  2. AMLODIPINE [Concomitant]
  3. FLONASE [Concomitant]
  4. LEVOTHYROID (LEVOTHYROXINE) [Concomitant]
  5. METOPROLOL TARTRATE [Concomitant]
  6. PREVACID [Concomitant]
  7. RAMIPRIL [Concomitant]
  8. SENOKOT (SENNA FRUIT) (TABLETS) [Concomitant]
  9. TYLENOL (PARACETAMOL) (SUPPOSITORY) [Concomitant]
  10. DULCOLAX (BISACODYL) (SUPPOSITORY) [Concomitant]
  11. BENADRYL [Concomitant]
  12. HYDROCODONE/ APAP (PEROCET /USA/) [Concomitant]
  13. AMBIEN [Concomitant]
  14. CITYWIDE SLIDING SCALE INSULIN (INSULIN) [Concomitant]

REACTIONS (7)
  - ARTERIAL STENOSIS [None]
  - ATRIAL FIBRILLATION [None]
  - CEREBROVASCULAR ACCIDENT [None]
  - FALL [None]
  - ISCHAEMIC STROKE [None]
  - MALIGNANT NEOPLASM PROGRESSION [None]
  - URINARY TRACT INFECTION [None]
